FAERS Safety Report 16406277 (Version 1)
Quarter: 2019Q2

REPORT INFORMATION
  Report Type: Spontaneous
  Country: US (occurrence: US)
  Receive Date: 20190607
  Receipt Date: 20190607
  Transmission Date: 20190711
  Serious: No
  Sender: FDA-Public Use
  Company Number: US-ALLERGAN-1854183US

PATIENT
  Age: 88 Year
  Sex: Female

DRUGS (3)
  1. UNKNOWN BLOOD PRESSURE MEDICATION [Concomitant]
     Active Substance: UNSPECIFIED INGREDIENT
     Indication: BLOOD PRESSURE MEASUREMENT
     Route: 048
  2. VITAMINS [Concomitant]
     Active Substance: VITAMINS
     Route: 048
  3. VIBERZI [Suspect]
     Active Substance: ELUXADOLINE
     Indication: DIARRHOEA
     Dosage: UNK, BID
     Route: 048

REACTIONS (2)
  - Intentional dose omission [Unknown]
  - Off label use [Unknown]
